FAERS Safety Report 19614170 (Version 1)
Quarter: 2021Q3

REPORT INFORMATION
  Report Type: Spontaneous
  Country: IT (occurrence: IT)
  Receive Date: 20210727
  Receipt Date: 20210727
  Transmission Date: 20211014
  Serious: Yes (Other)
  Sender: FDA-Public Use
  Company Number: IT-FRESENIUS KABI-FK202107684

PATIENT
  Age: 59 Year
  Sex: Female

DRUGS (12)
  1. IRINOTECAN (MANUFACTURER UNKNOWN) [Suspect]
     Active Substance: IRINOTECAN
     Dosage: SECOND LINE TREATMENT: 110 MG/M2
     Route: 065
  2. IRINOTECAN (MANUFACTURER UNKNOWN) [Suspect]
     Active Substance: IRINOTECAN
     Route: 065
  3. OXALIPLATIN (MANUFACTURER UNKNOWN) [Suspect]
     Active Substance: OXALIPLATIN
     Indication: COLORECTAL CANCER METASTATIC
     Dosage: 80 MG/M2 ON DAYS 8 AND 22, EVERY 28 DAYS
     Route: 065
  4. IRINOTECAN (MANUFACTURER UNKNOWN) [Suspect]
     Active Substance: IRINOTECAN
     Route: 065
  5. FLUOROURACIL. [Suspect]
     Active Substance: FLUOROURACIL
     Indication: COLORECTAL CANCER METASTATIC
     Dosage: 900 MG/M2/DAY ON DAYS 1?2, 8?9, 15?16 AND 22?23, EVERY 28 DAYS
     Route: 065
  6. AFLIBERCEPT BETA [Suspect]
     Active Substance: ZIV-AFLIBERCEPT
     Indication: COLORECTAL CANCER METASTATIC
     Dosage: SECOND LINE TREATMENT: 4 MG/KG ON DAYS 1 AND 15, EVERY 28 DAYS FOR 6 CYCLES
     Route: 065
  7. BEVACIZUMAB. [Suspect]
     Active Substance: BEVACIZUMAB
     Indication: COLORECTAL CANCER METASTATIC
     Dosage: 4 CYCLES OF FIRST?LINE FIR?B/FOX REGIMEN, DOSE: 5 MG/KG ON DAYS 1 AND 15, EVERY 28 DAYS
     Route: 065
  8. IRINOTECAN (MANUFACTURER UNKNOWN) [Suspect]
     Active Substance: IRINOTECAN
     Indication: COLORECTAL CANCER METASTATIC
     Dosage: 4 CYCLES OF FIRST?LINE FIR?B/FOX REGIMEN, DOSE: 160 MG/M2 ON DAYS 1 AND 15; EVERY 28 DAYS
     Route: 065
  9. IRINOTECAN (MANUFACTURER UNKNOWN) [Suspect]
     Active Substance: IRINOTECAN
     Dosage: DOSE WAS CHANGED AT FIRST CYCLE TO 60 MG/M2/WEEK
     Route: 065
  10. FLUOROURACIL. [Suspect]
     Active Substance: FLUOROURACIL
     Dosage: 3 CYCLES OF FIR?B/FOX REGIMEN: 800 MG/M2/DAY
     Route: 065
  11. IRINOTECAN (MANUFACTURER UNKNOWN) [Suspect]
     Active Substance: IRINOTECAN
     Dosage: 3 CYCLES OF FIR?B/FOX REGIMEN: 140 MG/M2
     Route: 065
  12. FLUOROURACIL. [Suspect]
     Active Substance: FLUOROURACIL
     Dosage: 750 MG/M2/DAY
     Route: 065

REACTIONS (12)
  - Diarrhoea [Unknown]
  - Mucosal inflammation [Unknown]
  - Constipation [Unknown]
  - Rhinitis [Unknown]
  - Alopecia [Unknown]
  - Dysphonia [Unknown]
  - Nausea [Unknown]
  - Pyrexia [Unknown]
  - Hypertension [Unknown]
  - Neuropathy peripheral [Unknown]
  - Epistaxis [Unknown]
  - Asthenia [Unknown]
